FAERS Safety Report 6531621-8 (Version None)
Quarter: 2010Q1

REPORT INFORMATION
  Report Type: 
  Country: None (occurrence: None)
  Receive Date: 20100108
  Receipt Date: 20091230
  Transmission Date: 20100710
  Serious: Yes (Other)
  Sender: FDA-Public Use
  Company Number: US-PFIZER INC-2009316465

PATIENT
  Age: 36 Year
  Sex: Male
  Weight: 81.633 kg

DRUGS (1)
  1. CHANTIX [Suspect]
     Indication: SMOKING CESSATION THERAPY
     Dosage: 1 MG, 2X/DAY

REACTIONS (3)
  - BLISTER [None]
  - PRURITUS [None]
  - SCAR [None]
